FAERS Safety Report 8181278-8 (Version None)
Quarter: 2012Q1

REPORT INFORMATION
  Report Type: 
  Country: None (occurrence: None)
  Receive Date: 20120302
  Receipt Date: 20120229
  Transmission Date: 20120608
  Serious: Yes (Hospitalization)
  Sender: FDA-Public Use
  Company Number: IT-PFIZER INC-2012040727

PATIENT
  Age: 82 Year
  Sex: Female

DRUGS (9)
  1. MEDROL [Suspect]
     Dosage: 1 DF, 1X/DAY
     Route: 048
     Dates: start: 20110930, end: 20111012
  2. MICARDIS HCT [Suspect]
     Indication: HYPERTENSION
     Dosage: 1 DF, 1X/DAY
     Route: 048
     Dates: start: 20111010, end: 20111012
  3. LOPRESSOR [Concomitant]
     Dosage: 25 MG
     Route: 048
  4. LEVOTHYROXINE SODIUM [Concomitant]
  5. HUMALOG [Concomitant]
     Dosage: 15 DF
     Route: 058
  6. LASIX [Suspect]
     Indication: HYPERTENSION
     Dosage: 2 DF, 1X/DAY
     Route: 048
     Dates: start: 20100701, end: 20111012
  7. LEVOFLOXACIN [Suspect]
     Indication: BRONCHOPNEUMONIA
     Dosage: 1 DF, 1X/DAY
     Route: 048
     Dates: start: 20110930
  8. MEPRAL [Concomitant]
     Dosage: 1 DF
     Route: 048
  9. VITAMIN D [Concomitant]

REACTIONS (1)
  - RENAL FAILURE ACUTE [None]
